FAERS Safety Report 8347929-X (Version None)
Quarter: 2012Q2

REPORT INFORMATION
  Report Type: 
  Country: None (occurrence: None)
  Receive Date: 20120509
  Receipt Date: 20120507
  Transmission Date: 20120825
  Serious: Yes (Hospitalization, Disabling)
  Sender: FDA-Public Use
  Company Number: US-B.I. PHARMACEUTICALS,INC./RIDGEFIELD-2012-BP-06129BP

PATIENT
  Age: 70 Year
  Sex: Male

DRUGS (7)
  1. SYMBICORT [Concomitant]
     Indication: DYSPNOEA
  2. METOPROLOL TARTRATE [Concomitant]
     Indication: HYPERTENSION
  3. ASPIRIN [Concomitant]
  4. GENERIC CLARITIN [Concomitant]
     Indication: RHINITIS
  5. PRADAXA [Suspect]
     Indication: ATRIAL FIBRILLATION
     Dosage: 300 MG
     Route: 048
     Dates: start: 20110901, end: 20110902
  6. SINGULAIR [Concomitant]
     Indication: DYSPNOEA
  7. SPIRIVA [Concomitant]
     Indication: DYSPNOEA
     Dates: start: 20090101

REACTIONS (2)
  - CEREBELLAR INFARCTION [None]
  - BALANCE DISORDER [None]
